FAERS Safety Report 8030653-0 (Version None)
Quarter: 2012Q1

REPORT INFORMATION
  Report Type: 
  Country: None (occurrence: None)
  Receive Date: 20120109
  Receipt Date: 20120102
  Transmission Date: 20120608
  Serious: Yes (Other)
  Sender: FDA-Public Use
  Company Number: PHBS2007BR14533

PATIENT
  Age: 49 Year
  Sex: Female
  Weight: 108 kg

DRUGS (10)
  1. EXFORGE [Suspect]
     Dosage: 1 DF DAILY
     Route: 048
  2. HYDROCHLOROTHIAZIDE [Concomitant]
     Indication: OEDEMA PERIPHERAL
     Dosage: 1 DF DAILY
  3. EXFORGE [Suspect]
     Dosage: 1 TABET DAILY
     Route: 048
     Dates: start: 20050101
  4. EXFORGE [Suspect]
     Indication: HYPERTENSION
     Dosage: 1 DF DAILY
     Route: 048
  5. GLICLAZIDE [Concomitant]
     Indication: DIABETES MELLITUS
     Dosage: 3 DF A DAY
     Route: 048
  6. FERROUS SULFATE TAB [Concomitant]
     Indication: ANAEMIA
     Dosage: 1 DF DAILY
     Dates: start: 20120102
  7. EXFORGE [Suspect]
     Indication: HYPERTENSION
     Dosage: 1 TABET DAILY
     Route: 048
     Dates: start: 20050101
  8. METFORMIN HCL [Concomitant]
     Indication: DIABETES MELLITUS
     Dosage: 3 DF A DAY
     Route: 048
  9. GLYBURIDE [Concomitant]
     Indication: DIABETES MELLITUS
     Dosage: 3 DF DAILY
     Route: 048
  10. SIMVASTATIN [Concomitant]
     Indication: DIABETES MELLITUS
     Dosage: 1 DF DAILY
     Route: 048

REACTIONS (5)
  - UTERINE CANCER [None]
  - COUGH [None]
  - HEADACHE [None]
  - THROAT IRRITATION [None]
  - BLOOD PRESSURE INCREASED [None]
